FAERS Safety Report 4667974-5 (Version None)
Quarter: 2005Q2

REPORT INFORMATION
  Report Type: 
  Country: None (occurrence: None)
  Receive Date: 20050520
  Receipt Date: 20050513
  Transmission Date: 20051028
  Serious: Yes (Hospitalization)
  Sender: FDA-Public Use
  Company Number: 2005UW07487

PATIENT
  Age: 35 Year
  Sex: Female

DRUGS (2)
  1. SEROQUEL [Suspect]
     Route: 048
  2. COUMADIN [Interacting]

REACTIONS (3)
  - DRUG INTERACTION [None]
  - MALABSORPTION [None]
  - PROTHROMBIN TIME PROLONGED [None]
